FAERS Safety Report 18178449 (Version 2)
Quarter: 2020Q4

REPORT INFORMATION
  Report Type: Spontaneous
  Country: US (occurrence: US)
  Receive Date: 20200820
  Receipt Date: 20201016
  Transmission Date: 20210113
  Serious: Yes (Death, Other)
  Sender: FDA-Public Use
  Company Number: US-ALEXION-A202011790

PATIENT
  Age: 28 Year
  Sex: Male

DRUGS (10)
  1. VANCOMYCIN [Concomitant]
     Active Substance: VANCOMYCIN
     Indication: INFECTION
     Route: 065
  2. LEVOFLOXACIN. [Concomitant]
     Active Substance: LEVOFLOXACIN
     Indication: INFECTION
     Route: 065
  3. MEROPENEM. [Concomitant]
     Active Substance: MEROPENEM
     Indication: INFECTION
     Route: 065
  4. PIPERACILLIN. [Concomitant]
     Active Substance: PIPERACILLIN SODIUM
     Indication: INFECTION
     Route: 065
  5. SOLIRIS [Suspect]
     Active Substance: ECULIZUMAB
     Indication: OFF LABEL USE
     Dosage: 900 MG, UNK
     Route: 042
  6. SOLIRIS [Suspect]
     Active Substance: ECULIZUMAB
     Indication: COVID-19 TREATMENT
  7. ENOXAPARIN [Concomitant]
     Active Substance: ENOXAPARIN
     Indication: PROPHYLAXIS
     Route: 065
  8. TOCILIZUMAB. [Concomitant]
     Active Substance: TOCILIZUMAB
     Indication: C-REACTIVE PROTEIN INCREASED
     Dosage: 800 MG, UNK
     Route: 042
  9. HYDROXYCHLOROQUINE [Concomitant]
     Active Substance: HYDROXYCHLOROQUINE
     Indication: PRODUCT USED FOR UNKNOWN INDICATION
     Route: 065
  10. TOCILIZUMAB. [Concomitant]
     Active Substance: TOCILIZUMAB
     Indication: ACUTE KIDNEY INJURY

REACTIONS (2)
  - Clostridium difficile infection [Fatal]
  - Off label use [Unknown]
